FAERS Safety Report 8408270-X (Version None)
Quarter: 2012Q2

REPORT INFORMATION
  Report Type: 
  Country: None (occurrence: None)
  Receive Date: 20120604
  Receipt Date: 20120518
  Transmission Date: 20120825
  Serious: No
  Sender: FDA-Public Use
  Company Number: US-ROXANE LABORATORIES, INC.-2012-RO-01052RO

PATIENT
  Sex: Female

DRUGS (1)
  1. BUTORPHANOL TARATRATE [Suspect]
     Indication: MIGRAINE
     Route: 045
     Dates: start: 20120410

REACTIONS (6)
  - EPISTAXIS [None]
  - NODULE [None]
  - LACRIMATION INCREASED [None]
  - NASAL DISCOMFORT [None]
  - INFLUENZA LIKE ILLNESS [None]
  - THROAT IRRITATION [None]
